FAERS Safety Report 10420020 (Version 2)
Quarter: 2014Q3

REPORT INFORMATION
  Report Type: Spontaneous
  Country: PL (occurrence: PL)
  Receive Date: 20140829
  Receipt Date: 20140829
  Transmission Date: 20150326
  Serious: Yes (Other)
  Sender: FDA-Public Use
  Company Number: PL-BAXTER-2014BAX044540

PATIENT
  Age: 10 Year
  Sex: Male

DRUGS (12)
  1. INJECTIO GLUCOSI 5% + NATRII CHLORATI 0,9% [Suspect]
     Active Substance: DEXTROSE\SODIUM CHLORIDE
     Indication: PLEURISY
  2. CEFUROXIME. [Suspect]
     Active Substance: CEFUROXIME
     Indication: PNEUMONIA
     Route: 042
  3. AMBROXOL [Suspect]
     Active Substance: AMBROXOL
     Indication: PLEURISY
  4. FLUCONAZOLE REDIBAG 2 MG/ML [Suspect]
     Active Substance: FLUCONAZOLE
     Indication: PNEUMONIA
     Route: 042
  5. CEFUROXIME. [Suspect]
     Active Substance: CEFUROXIME
     Indication: PLEURISY
  6. AMBROXOL [Suspect]
     Active Substance: AMBROXOL
     Indication: PNEUMONIA
     Route: 042
  7. AMIKACIN [Suspect]
     Active Substance: AMIKACIN
     Indication: PLEURISY
  8. SODIUM VALPROATE [Concomitant]
     Active Substance: VALPROATE SODIUM
     Indication: EPILEPSY
     Route: 065
  9. AMIKACIN [Suspect]
     Active Substance: AMIKACIN
     Indication: PNEUMONIA
     Route: 042
  10. FLUCONAZOLE REDIBAG 2 MG/ML [Suspect]
     Active Substance: FLUCONAZOLE
     Indication: PLEURISY
  11. INJECTIO GLUCOSI 5% + NATRII CHLORATI 0,9% [Suspect]
     Active Substance: DEXTROSE\SODIUM CHLORIDE
     Indication: PNEUMONIA
     Route: 065
  12. VALPROIC ACID. [Concomitant]
     Active Substance: VALPROIC ACID
     Indication: EPILEPSY
     Route: 065

REACTIONS (5)
  - Mycoplasma infection [Recovered/Resolved]
  - Pallor [None]
  - Hypertonia [None]
  - Drug ineffective [Recovered/Resolved]
  - Crepitations [None]
